FAERS Safety Report 4499101-1 (Version None)
Quarter: 2004Q4

REPORT INFORMATION
  Report Type: 
  Country: None (occurrence: None)
  Receive Date: 20041108
  Receipt Date: 20041025
  Transmission Date: 20050328
  Serious: Yes (Other)
  Sender: FDA-Public Use
  Company Number: HQWYE027025OCT04

PATIENT
  Age: 42 Year
  Sex: Male

DRUGS (2)
  1. CONTROLOC (PANTOPRAZOLE, UNSPEC) [Suspect]
     Indication: GASTROOESOPHAGEAL REFLUX DISEASE
  2. METOPROLOL TARTRATE [Concomitant]

REACTIONS (1)
  - ELECTROCARDIOGRAM QT PROLONGED [None]
